FAERS Safety Report 17444227 (Version 2)
Quarter: 2020Q1

REPORT INFORMATION
  Report Type: Spontaneous
  Country: GB (occurrence: GB)
  Receive Date: 20200221
  Receipt Date: 20200225
  Transmission Date: 20200409
  Serious: Yes (Other)
  Sender: FDA-Public Use
  Company Number: GB-GLAXOSMITHKLINE-GB2020GSK031548

PATIENT
  Age: 35 Year
  Sex: Female

DRUGS (2)
  1. NIQUITIN [Suspect]
     Active Substance: NICOTINE
     Dosage: 1.5 MG
     Route: 065
  2. NIQUITIN [Suspect]
     Active Substance: NICOTINE
     Indication: SMOKING CESSATION THERAPY
     Dosage: 4 MG
     Route: 065
     Dates: start: 2013

REACTIONS (3)
  - Intentional product misuse [Unknown]
  - Drug dependence [Unknown]
  - Withdrawal syndrome [Unknown]
